FAERS Safety Report 25979214 (Version 2)
Quarter: 2025Q4

REPORT INFORMATION
  Report Type: Spontaneous
  Country: US (occurrence: US)
  Receive Date: 20251030
  Receipt Date: 20251105
  Transmission Date: 20260117
  Serious: No
  Sender: ROCHE
  Company Number: US-ROCHE-10000422035

PATIENT

DRUGS (4)
  1. ITOVEBI [Suspect]
     Active Substance: INAVOLISIB
     Indication: Breast cancer metastatic
     Route: 065
  2. ITOVEBI [Suspect]
     Active Substance: INAVOLISIB
     Route: 065
  3. FULVESTRANT [Suspect]
     Active Substance: FULVESTRANT
     Indication: Breast cancer metastatic
     Route: 065
  4. PALBOCICLIB [Suspect]
     Active Substance: PALBOCICLIB
     Indication: Breast cancer metastatic
     Route: 065

REACTIONS (1)
  - Blood glucose increased [Unknown]
